FAERS Safety Report 6710226-X (Version None)
Quarter: 2010Q2

REPORT INFORMATION
  Report Type: 
  Country: None (occurrence: None)
  Receive Date: 20100430
  Receipt Date: 20100420
  Transmission Date: 20101027
  Serious: Yes (Other)
  Sender: FDA-Public Use
  Company Number: MC201000128

PATIENT
  Sex: Male

DRUGS (6)
  1. ANGIOMAX [Suspect]
     Indication: ANGIOPLASTY
     Dosage: INTRAVENOUS
     Route: 042
     Dates: start: 20090101
  2. ANGIOMAX [Suspect]
     Indication: STENT PLACEMENT
     Dosage: INTRAVENOUS
     Route: 042
     Dates: start: 20090101
  3. EPTIFIBATIDE      (EPTIFIBATIDE) [Suspect]
     Indication: ANGIOPLASTY
     Dosage: INTRAVENOUS
     Route: 042
     Dates: start: 20090101
  4. EPTIFIBATIDE      (EPTIFIBATIDE) [Suspect]
     Indication: STENT PLACEMENT
     Dosage: INTRAVENOUS
     Route: 042
     Dates: start: 20090101
  5. ASPIRIN [Concomitant]
  6. CLOPIDOGREL [Concomitant]

REACTIONS (4)
  - EJECTION FRACTION DECREASED [None]
  - LEFT VENTRICULAR DYSFUNCTION [None]
  - TROPONIN INCREASED [None]
  - VENTRICULAR HYPOKINESIA [None]
